FAERS Safety Report 6452862-4 (Version None)
Quarter: 2009Q4

REPORT INFORMATION
  Report Type: 
  Country: None (occurrence: None)
  Receive Date: 20091124
  Receipt Date: 20090128
  Transmission Date: 20100525
  Serious: No
  Sender: FDA-Public Use
  Company Number: US-ABBOTT-09P-163-0500920-00

PATIENT
  Sex: Female
  Weight: 81.72 kg

DRUGS (14)
  1. TRICOR [Suspect]
     Indication: BLOOD CHOLESTEROL INCREASED
     Route: 048
     Dates: end: 20090128
  2. TRICOR [Suspect]
     Indication: BLOOD TRIGLYCERIDES INCREASED
  3. CRESTOR [Concomitant]
     Indication: BLOOD CHOLESTEROL INCREASED
  4. PLAVIX [Concomitant]
     Indication: CARDIAC DISORDER
     Route: 048
  5. ZETIA [Concomitant]
     Indication: BLOOD CHOLESTEROL
     Route: 048
  6. ZESTRIL [Concomitant]
     Indication: HYPERTENSION
     Route: 048
  7. OMEPRAZOLE [Concomitant]
     Indication: HIATUS HERNIA
     Route: 048
  8. ATENOLOL [Concomitant]
     Indication: HYPERTENSION
     Dosage: 25 1/2 TAB QD
     Route: 048
  9. MAXZIDE [Concomitant]
     Indication: HYPERTENSION
     Dosage: ONCE 3-4 TIMES WEEK
     Route: 048
  10. NITROGLYCERIN [Concomitant]
     Indication: ANGINA PECTORIS
  11. OXYCODONE HCL [Concomitant]
     Indication: PAIN
     Route: 048
  12. ASPIRIN [Concomitant]
     Indication: CARDIAC DISORDER
     Dosage: C/NIASPAN DAILY AT BEDTIME
     Route: 048
     Dates: start: 20090128
  13. ASPIRIN [Concomitant]
     Route: 048
     Dates: end: 20090128
  14. VITAMIN B-12 [Concomitant]
     Indication: DRUG USE FOR UNKNOWN INDICATION

REACTIONS (5)
  - ABDOMINAL PAIN UPPER [None]
  - BLOOD TRIGLYCERIDES INCREASED [None]
  - DYSGEUSIA [None]
  - MALAISE [None]
  - NAUSEA [None]
